FAERS Safety Report 22167148 (Version 1)
Quarter: 2023Q2

REPORT INFORMATION
  Report Type: Spontaneous
  Country: US (occurrence: None)
  Receive Date: 20230402
  Receipt Date: 20230402
  Transmission Date: 20230722
  Serious: Yes (Other)
  Sender: FDA-Public Use
  Company Number: None

PATIENT
  Age: 50 Year
  Sex: Female

DRUGS (5)
  1. HYDROCHLOROTHIAZIDE [Suspect]
     Active Substance: HYDROCHLOROTHIAZIDE
     Indication: Sleep disorder
     Dosage: OTHER QUANTITY : 2 TABLET(S);?FREQUENCY : TWICE A DAY;?
     Route: 048
     Dates: start: 20230327, end: 20230401
  2. LEVOTHYROXINE [Concomitant]
     Active Substance: LEVOTHYROXINE
  3. HYDROXYZINE [Concomitant]
     Active Substance: HYDROXYZINE HYDROCHLORIDE
  4. Multi Vit + Collagen gummies [Concomitant]
  5. Hair-Skin-Nails gummies [Concomitant]

REACTIONS (18)
  - Treatment delayed [None]
  - Communication disorder [None]
  - Dizziness [None]
  - Pollakiuria [None]
  - Vision blurred [None]
  - Tachycardia [None]
  - Hot flush [None]
  - Headache [None]
  - Anxiety [None]
  - Insomnia [None]
  - Asthenia [None]
  - Heart rate increased [None]
  - Hypotension [None]
  - Hypertension [None]
  - Blood triglycerides increased [None]
  - Product dispensing error [None]
  - Wrong product administered [None]
  - Dizziness postural [None]

NARRATIVE: CASE EVENT DATE: 20230327
